FAERS Safety Report 15602940 (Version 1)
Quarter: 2018Q4

REPORT INFORMATION
  Report Type: Spontaneous
  Country: FR (occurrence: FR)
  Receive Date: 20181109
  Receipt Date: 20181109
  Transmission Date: 20190205
  Serious: Yes (Other)
  Sender: FDA-Public Use
  Company Number: FR-PROVELL PHARMACEUTICALS-2058660

PATIENT
  Age: 3 Day
  Sex: Female

DRUGS (1)
  1. EUTHYROX [Suspect]
     Active Substance: LEVOTHYROXINE SODIUM
     Indication: AUTOIMMUNE THYROIDITIS

REACTIONS (4)
  - Tri-iodothyronine free increased [None]
  - Blood thyroid stimulating hormone increased [None]
  - Thyroxine free increased [None]
  - Foetal exposure during pregnancy [Recovered/Resolved]
